FAERS Safety Report 5759278-4 (Version None)
Quarter: 2008Q2

REPORT INFORMATION
  Report Type: 
  Country: None (occurrence: None)
  Receive Date: 20080604
  Receipt Date: 20080528
  Transmission Date: 20081010
  Serious: Yes (Hospitalization, Disabling, Other)
  Sender: FDA-Public Use
  Company Number: US-BAXTER-2008BH000894

PATIENT
  Age: 57 Year
  Sex: Male
  Weight: 108 kg

DRUGS (8)
  1. HEPARIN SODIUM INJECTION [Suspect]
     Indication: PROPHYLAXIS
     Route: 010
  2. CALCITRIOL [Concomitant]
     Indication: RENAL DISORDER
     Route: 065
  3. CLARITIN [Concomitant]
     Indication: HYPERSENSITIVITY
     Route: 065
  4. EPOGEN [Concomitant]
     Indication: RED BLOOD CELL COUNT INCREASED
     Route: 065
  5. POTASSIUM CHLORIDE [Concomitant]
     Indication: DIALYSIS
     Route: 065
  6. PROTONIX [Concomitant]
     Indication: DIALYSIS
     Route: 065
  7. RENAGIL [Concomitant]
     Indication: DIALYSIS
     Route: 065
  8. NEORAL [Concomitant]
     Indication: LIVER TRANSPLANT
     Route: 065

REACTIONS (8)
  - ABDOMINAL PAIN [None]
  - ANOREXIA [None]
  - ATRIAL FIBRILLATION [None]
  - GASTROENTERITIS VIRAL [None]
  - INFECTION [None]
  - PYREXIA [None]
  - STOMACH DISCOMFORT [None]
  - VOMITING [None]
